FAERS Safety Report 7921558-1 (Version None)
Quarter: 2011Q4

REPORT INFORMATION
  Report Type: 
  Country: None (occurrence: None)
  Receive Date: 20111117
  Receipt Date: 20111111
  Transmission Date: 20120403
  Serious: Yes (Hospitalization, Other)
  Sender: FDA-Public Use
  Company Number: PHHY2010US81932

PATIENT
  Age: 24 Year
  Sex: Male
  Weight: 58.957 kg

DRUGS (2)
  1. PULMOZYME [Concomitant]
  2. TOBI [Suspect]
     Indication: CYSTIC FIBROSIS
     Dosage: 300 MG, BID VIA NEBULIZER IN A CYCLE OF 28 DAYS ON AND 28 OFF
     Dates: start: 20100203

REACTIONS (2)
  - UPPER RESPIRATORY TRACT INFECTION [None]
  - LUNG INFECTION [None]
